FAERS Safety Report 6059408-3 (Version None)
Quarter: 2009Q1

REPORT INFORMATION
  Report Type: 
  Country: None (occurrence: None)
  Receive Date: 20090130
  Receipt Date: 20090121
  Transmission Date: 20090719
  Serious: Yes (Other)
  Sender: FDA-Public Use
  Company Number: FR-ELI_LILLY_AND_COMPANY-FR200901003363

PATIENT
  Sex: Female

DRUGS (9)
  1. GEMZAR [Suspect]
     Indication: BREAST CANCER METASTATIC
     Dosage: WEEKLY FOR 3 WKS
     Route: 042
     Dates: start: 20080320, end: 20080828
  2. VALSARTAN [Concomitant]
  3. FUMAFER [Concomitant]
  4. VASTAREL [Concomitant]
  5. TRIMEBUTINE [Concomitant]
  6. BROMAZEPAM [Concomitant]
  7. ANAFRANIL [Concomitant]
  8. RIVOTRIL [Concomitant]
  9. COUMADIN [Concomitant]

REACTIONS (3)
  - ASCITES [None]
  - OEDEMA PERIPHERAL [None]
  - PLEURAL EFFUSION [None]
